FAERS Safety Report 6340678-9 (Version None)
Quarter: 2009Q3

REPORT INFORMATION
  Report Type: 
  Country: None (occurrence: None)
  Receive Date: 20090904
  Receipt Date: 20090827
  Transmission Date: 20100115
  Serious: Yes (Hospitalization)
  Sender: FDA-Public Use
  Company Number: CA-JNJFOC-20090301630

PATIENT
  Sex: Female
  Weight: 71 kg

DRUGS (2)
  1. REMICADE [Suspect]
     Indication: CROHN'S DISEASE
     Dosage: THE PATIENT HAS HAD 5 INFUSIONS.
     Route: 042
  2. CELEXA [Concomitant]
     Indication: DEPRESSION

REACTIONS (7)
  - CHRONIC OBSTRUCTIVE PULMONARY DISEASE [None]
  - DEPRESSION [None]
  - KNEE ARTHROPLASTY [None]
  - LUNG NEOPLASM [None]
  - POST PROCEDURAL INFECTION [None]
  - RESTRICTIVE PULMONARY DISEASE [None]
  - SOCIAL PROBLEM [None]
